FAERS Safety Report 25500630 (Version 2)
Quarter: 2025Q4

REPORT INFORMATION
  Report Type: Report from Study
  Country: US (occurrence: US)
  Receive Date: 20250701
  Receipt Date: 20251218
  Transmission Date: 20260117
  Serious: Yes (Other)
  Sender: SPRINGWORKS THERAPEUTIC
  Company Number: US-SPRINGWORKS THERAPEUTICS-SW-002458

PATIENT
  Sex: Male

DRUGS (2)
  1. NIROGACESTAT [Suspect]
     Active Substance: NIROGACESTAT
     Indication: Desmoid tumour
     Dosage: 100 MILLIGRAM, BID
     Route: 061
     Dates: start: 20250217
  2. NIROGACESTAT [Suspect]
     Active Substance: NIROGACESTAT
     Dosage: 150 MILLIGRAM, BID
     Route: 061
     Dates: start: 20250217

REACTIONS (11)
  - Precancerous skin lesion [Unknown]
  - Gastrointestinal sounds abnormal [Unknown]
  - Pruritus [Unknown]
  - Renal disorder [Unknown]
  - Arthritis [Unknown]
  - Alopecia [Unknown]
  - Fatigue [Not Recovered/Not Resolved]
  - Diarrhoea [Not Recovered/Not Resolved]
  - Nausea [Unknown]
  - Blood phosphorus decreased [Not Recovered/Not Resolved]
  - Arthralgia [Unknown]
